FAERS Safety Report 9131544 (Version 1)
Quarter: 2013Q1

REPORT INFORMATION
  Report Type: Spontaneous
  Country: JP (occurrence: JP)
  Receive Date: 20130301
  Receipt Date: 20130301
  Transmission Date: 20140127
  Serious: Yes (Other)
  Sender: FDA-Public Use
  Company Number: JP-JNJFOC-20130216297

PATIENT
  Sex: Female

DRUGS (1)
  1. REMICADE [Suspect]
     Indication: COLITIS ULCERATIVE
     Route: 042
     Dates: start: 20120821

REACTIONS (2)
  - Premature delivery [Recovered/Resolved]
  - Exposure during pregnancy [Recovered/Resolved]
